FAERS Safety Report 9340215 (Version 4)
Quarter: 2014Q2

REPORT INFORMATION
  Report Type: Spontaneous
  Country: US (occurrence: US)
  Receive Date: 20130610
  Receipt Date: 20140613
  Transmission Date: 20141212
  Serious: No
  Sender: FDA-Public Use
  Company Number: US-PFIZER INC-2013171543

PATIENT
  Age: 68 Year
  Sex: Male

DRUGS (4)
  1. CELEBREX [Suspect]
     Indication: ARTHRITIS
     Dosage: UNK (200/M), AS NEEDED
  2. CELEBREX [Suspect]
     Indication: PAIN IN EXTREMITY
  3. DAILY VITE [Concomitant]
     Dosage: UNK
  4. METAMUCIL FIBER [Concomitant]
     Dosage: UNK

REACTIONS (2)
  - Mobility decreased [Unknown]
  - Pain [Unknown]
